FAERS Safety Report 8815976 (Version 6)
Quarter: 2014Q2

REPORT INFORMATION
  Report Type: Spontaneous
  Country: US (occurrence: US)
  Receive Date: 20120928
  Receipt Date: 20140409
  Transmission Date: 20141212
  Serious: Yes (Hospitalization, Disabling, Other)
  Sender: FDA-Public Use
  Company Number: US-009507513-1209USA008984

PATIENT
  Sex: Female
  Weight: 57.6 kg

DRUGS (2)
  1. FOSAMAX [Suspect]
     Indication: OSTEOPOROSIS
     Dosage: 70 MG, QW
     Route: 048
     Dates: start: 20030609, end: 20110422
  2. ALENDRONATE SODIUM [Suspect]
     Indication: OSTEOPOROSIS
     Dosage: 70 MG, QW
     Route: 048

REACTIONS (24)
  - Intramedullary rod insertion [Unknown]
  - Spinal compression fracture [Not Recovered/Not Resolved]
  - Femur fracture [Recovering/Resolving]
  - Impaired healing [Unknown]
  - Diverticulum [Unknown]
  - Hiatus hernia [Unknown]
  - Hypertension [Unknown]
  - Hyperlipidaemia [Unknown]
  - Irritable bowel syndrome [Unknown]
  - Appendicectomy [Unknown]
  - Ovarian cystectomy [Unknown]
  - Intervertebral disc degeneration [Unknown]
  - Joint instability [Unknown]
  - Osteopenia [Unknown]
  - Impaired healing [Unknown]
  - Paranasal sinus discomfort [Unknown]
  - Abdominal distension [Unknown]
  - Flatulence [Not Recovered/Not Resolved]
  - Flatulence [Not Recovered/Not Resolved]
  - Arthralgia [Not Recovered/Not Resolved]
  - Drug ineffective [Unknown]
  - Nausea [Unknown]
  - Pain in extremity [Unknown]
  - Back pain [Not Recovered/Not Resolved]
